FAERS Safety Report 20058535 (Version 2)
Quarter: 2022Q1

REPORT INFORMATION
  Report Type: Spontaneous
  Country: US (occurrence: US)
  Receive Date: 20211111
  Receipt Date: 20220128
  Transmission Date: 20220423
  Serious: Yes (Other)
  Sender: FDA-Public Use
  Company Number: US-LUPIN PHARMACEUTICALS INC.-2021-21940

PATIENT
  Sex: Male

DRUGS (2)
  1. PHENYTOIN SODIUM [Interacting]
     Active Substance: PHENYTOIN SODIUM
     Indication: Epilepsy
     Dosage: UNK (AT A THERAPEUTIC DOSE, SINCE LAST 4 YEARS)
     Route: 065
  2. VALPROIC ACID [Interacting]
     Active Substance: VALPROIC ACID
     Indication: Seizure
     Dosage: UNK (STARTED FROM LAST FEW MONTHS)
     Route: 065

REACTIONS (6)
  - Drug interaction [Unknown]
  - Toxicity to various agents [Unknown]
  - Confusional state [Unknown]
  - Dizziness [Unknown]
  - Balance disorder [Unknown]
  - Dysarthria [Unknown]
